FAERS Safety Report 12455681 (Version 1)
Quarter: 2016Q2

REPORT INFORMATION
  Report Type: Spontaneous
  Country: BR (occurrence: BR)
  Receive Date: 20160610
  Receipt Date: 20160610
  Transmission Date: 20160815
  Serious: Yes (Other)
  Sender: FDA-Public Use
  Company Number: BR-PFIZER INC-2016284698

PATIENT
  Age: 76 Year
  Sex: Female

DRUGS (10)
  1. ISKEMIL [Concomitant]
     Active Substance: DIHYDROERGOCRISTINE MESYLATE
     Indication: MENTAL DISORDER
     Dosage: UNK
     Route: 048
  2. CLINFAR [Concomitant]
     Active Substance: SIMVASTATIN
     Indication: BLOOD CHOLESTEROL
     Dosage: UNK
     Route: 048
  3. FLOXICAM /00500401/ [Concomitant]
     Indication: PAIN
     Dosage: UNK
     Route: 048
  4. RITMONORM [Concomitant]
     Active Substance: PROPAFENONE HYDROCHLORIDE
     Indication: CARDIAC DISORDER
     Dosage: UNK
     Route: 048
  5. SOMALGIN [Concomitant]
     Active Substance: ASPIRIN\DIHYDROXYALUMINUM AMINOACETATE ANHYDROUS\MAGNESIUM CARBONATE
     Indication: PROPHYLAXIS
     Dosage: UNK
     Route: 048
  6. MILGAMMA /00089801/ [Concomitant]
     Indication: NERVOUSNESS
     Dosage: UNK
     Route: 048
  7. XALATAN [Suspect]
     Active Substance: LATANOPROST
     Indication: GLAUCOMA
     Dosage: UNK
     Route: 047
     Dates: start: 2006
  8. SYSTANE (HYPROMELLOSE 2910 (4000 MPA.S)) [Concomitant]
     Active Substance: HYPROMELLOSE 2910 (4000 MPA.S)
     Indication: EYE LUBRICATION THERAPY
     Dosage: UNK
     Route: 047
  9. VENOVAZ [Concomitant]
     Indication: VEIN DISORDER
     Dosage: UNK
     Route: 048
  10. DORZOLAMIDE [Concomitant]
     Active Substance: DORZOLAMIDE
     Indication: GLAUCOMA
     Dosage: UNK
     Route: 047

REACTIONS (5)
  - Cerebrovascular accident [Unknown]
  - Visual impairment [Unknown]
  - Activities of daily living impaired [Unknown]
  - Cerebrovascular accident [Unknown]
  - Head injury [Unknown]

NARRATIVE: CASE EVENT DATE: 2009
